FAERS Safety Report 16430219 (Version 2)
Quarter: 2019Q2

REPORT INFORMATION
  Report Type: Report from Study
  Country: IT (occurrence: IT)
  Receive Date: 20190614
  Receipt Date: 20190620
  Transmission Date: 20190711
  Serious: Yes (Other)
  Sender: FDA-Public Use
  Company Number: IT-ACCORD-132875

PATIENT
  Age: 48 Year
  Sex: Female

DRUGS (1)
  1. CARBOPLATIN AHCL [Suspect]
     Active Substance: CARBOPLATIN
     Indication: BREAST CANCER
     Dosage: 10 MG / ML
     Route: 042
     Dates: start: 20190208

REACTIONS (5)
  - Blood pressure decreased [Recovering/Resolving]
  - Flushing [Recovering/Resolving]
  - Extrasystoles [Recovering/Resolving]
  - Infusion related reaction [Recovering/Resolving]
  - Abdominal pain [Recovering/Resolving]

NARRATIVE: CASE EVENT DATE: 20190503
